FAERS Safety Report 17792183 (Version 1)
Quarter: 2020Q2

REPORT INFORMATION
  Report Type: Report from Study
  Country: GR (occurrence: GR)
  Receive Date: 20200515
  Receipt Date: 20200515
  Transmission Date: 20200714
  Serious: Yes (Other)
  Sender: FDA-Public Use
  Company Number: GR-ELI_LILLY_AND_COMPANY-GR202005003827

PATIENT
  Sex: Female

DRUGS (4)
  1. TERIPARATIDE [Suspect]
     Active Substance: TERIPARATIDE
     Indication: OSTEOPOROSIS
     Dosage: 20 UG, DAILY
     Route: 058
     Dates: start: 20190611
  2. IDEOS [Concomitant]
     Active Substance: CALCIUM CARBONATE\CHOLECALCIFEROL
     Indication: OSTEOPOROSIS
     Dosage: 1 DOSAGE FORM, DAILY
     Dates: end: 201909
  3. ALPHAZOL [Concomitant]
     Indication: OSTEOPOROSIS
     Dosage: 1 DOSAGE FORM, DAILY
     Dates: end: 201909
  4. DIPEN [DILTIAZEM HYDROCHLORIDE] [Concomitant]
     Indication: BLOOD PRESSURE INCREASED
     Dosage: 1 DOSAGE FORM, DAILY

REACTIONS (2)
  - Fatigue [Not Recovered/Not Resolved]
  - Nephrolithiasis [Unknown]

NARRATIVE: CASE EVENT DATE: 2019
